FAERS Safety Report 8058992-8 (Version None)
Quarter: 2012Q1

REPORT INFORMATION
  Report Type: 
  Country: None (occurrence: None)
  Receive Date: 20120120
  Receipt Date: 20101208
  Transmission Date: 20120608
  Serious: No
  Sender: FDA-Public Use
  Company Number: US-BAUSCH-2010BL006975

PATIENT
  Age: 59 Year
  Sex: Female

DRUGS (6)
  1. TYLENOL COLD MEDICATION [Concomitant]
     Indication: SEASONAL ALLERGY
  2. METOPROLOL [Concomitant]
     Indication: HYPERTENSION
     Dates: start: 20100601
  3. HYDROCHLOROTHIAZIDE [Concomitant]
     Indication: HYPERTENSION
     Dates: start: 20100601
  4. ALAWAY [Suspect]
     Indication: DRY EYE
     Route: 047
     Dates: start: 20101207, end: 20101207
  5. SYSTANE [Concomitant]
     Indication: DRY EYE
     Route: 047
     Dates: start: 20060101
  6. ALAWAY [Suspect]
     Indication: EYE PRURITUS
     Route: 047
     Dates: start: 20101207, end: 20101207

REACTIONS (3)
  - EYE IRRITATION [None]
  - HEADACHE [None]
  - TINNITUS [None]
